FAERS Safety Report 9156425 (Version 1)
Quarter: 2013Q1

REPORT INFORMATION
  Report Type: Spontaneous
  Country: US (occurrence: US)
  Receive Date: 20130312
  Receipt Date: 20130312
  Transmission Date: 20140127
  Serious: No
  Sender: FDA-Public Use
  Company Number: US-BIOGENIDEC-2013BI022367

PATIENT
  Sex: Female

DRUGS (1)
  1. AVONEX [Suspect]
     Indication: MULTIPLE SCLEROSIS
     Route: 030
     Dates: start: 20000901

REACTIONS (4)
  - Anger [Not Recovered/Not Resolved]
  - Feeling of despair [Not Recovered/Not Resolved]
  - Memory impairment [Unknown]
  - Depressed mood [Not Recovered/Not Resolved]
